FAERS Safety Report 8678798 (Version 3)
Quarter: 2012Q4

REPORT INFORMATION
  Report Type: 
  Country: US (occurrence: US)
  Receive Date: 20120723
  Receipt Date: 20120912
  Transmission Date: 20130627
  Serious: Yes (Other)
  Sender: FDA-Public Use
  Company Number: US-GLAXOSMITHKLINE-A0984591A

PATIENT
  Age: 75 Year
  Sex: Female

DRUGS (5)
  1. ADVAIR [Suspect]
     Indication: CHRONIC OBSTRUCTIVE PULMONARY DISEASE
     Dosage: 1PUFF Twice per day
     Route: 055
     Dates: start: 2010, end: 2012
  2. ANTI-CHOLESTEROL MEDICATION [Concomitant]
  3. BLOOD PRESSURE MEDICATION [Concomitant]
  4. GENERIC MEDICATION [Concomitant]
  5. SPIRIVA [Concomitant]

REACTIONS (6)
  - Necrotising ulcerative gingivostomatitis [Recovered/Resolved]
  - Dysphonia [Recovered/Resolved]
  - Dry throat [Recovered/Resolved]
  - Aphonia [Recovered/Resolved]
  - Candidiasis [Recovered/Resolved]
  - Drug ineffective [Unknown]
